FAERS Safety Report 7424080-4 (Version None)
Quarter: 2011Q2

REPORT INFORMATION
  Report Type: 
  Country: None (occurrence: None)
  Receive Date: 20110419
  Receipt Date: 20110408
  Transmission Date: 20111010
  Serious: Yes (Hospitalization)
  Sender: FDA-Public Use
  Company Number: PHHY2011US29452

PATIENT
  Age: 50 Year
  Sex: Female

DRUGS (2)
  1. LABETALOL [Suspect]
     Dosage: UNK UKN, UNK
  2. LORAZEPAM [Suspect]
     Dosage: UNK UKN, UNK

REACTIONS (12)
  - RESPIRATORY RATE DECREASED [None]
  - BLOOD LACTIC ACID DECREASED [None]
  - ELECTROCARDIOGRAM ABNORMAL [None]
  - BLOOD POTASSIUM DECREASED [None]
  - BLOOD CREATINE PHOSPHOKINASE ABNORMAL [None]
  - HYPOTHERMIA [None]
  - BLOOD GLUCOSE INCREASED [None]
  - BLOOD GASES ABNORMAL [None]
  - BRADYCARDIA [None]
  - HYPOTENSION [None]
  - OVERDOSE [None]
  - COMA SCALE ABNORMAL [None]
